FAERS Safety Report 4733020-8 (Version None)
Quarter: 2005Q3

REPORT INFORMATION
  Report Type: 
  Country: None (occurrence: None)
  Receive Date: 20050801
  Receipt Date: 20050725
  Transmission Date: 20060218
  Serious: Yes (Hospitalization)
  Sender: FDA-Public Use
  Company Number: 2005105645

PATIENT
  Age: 61 Year
  Sex: Male

DRUGS (1)
  1. ZOLOFT [Suspect]
     Indication: ILL-DEFINED DISORDER
     Dosage: 50 MG, ORAL
     Route: 048

REACTIONS (4)
  - ARTHROSCOPY [None]
  - ATRIAL FIBRILLATION [None]
  - PROCEDURAL COMPLICATION [None]
  - TACHYARRHYTHMIA [None]
